FAERS Safety Report 14391276 (Version 1)
Quarter: 2018Q1

REPORT INFORMATION
  Report Type: Spontaneous
  Country: KR (occurrence: KR)
  Receive Date: 20180116
  Receipt Date: 20180116
  Transmission Date: 20180509
  Serious: Yes (Other)
  Sender: FDA-Public Use
  Company Number: KR-009507513-1801KOR004662

PATIENT
  Sex: Male

DRUGS (2)
  1. JANUVIA 25MG [Suspect]
     Active Substance: SITAGLIPTIN PHOSPHATE
     Route: 048
  2. DIABEX [Suspect]
     Active Substance: METFORMIN HYDROCHLORIDE

REACTIONS (1)
  - Diabetes mellitus inadequate control [Unknown]
